FAERS Safety Report 4874667-8 (Version None)
Quarter: 2006Q1

REPORT INFORMATION
  Report Type: 
  Country: None (occurrence: None)
  Receive Date: 20060106
  Receipt Date: 20050509
  Transmission Date: 20060701
  Serious: Yes (Hospitalization, Disabling)
  Sender: FDA-Public Use
  Company Number: US-MERCK-0505USA01113

PATIENT
  Age: 57 Year
  Sex: Male
  Weight: 105 kg

DRUGS (2)
  1. VIOXX [Suspect]
     Indication: ARTHRALGIA
     Route: 048
     Dates: start: 20001101, end: 20040901
  2. ASPIRIN [Concomitant]
     Route: 065

REACTIONS (7)
  - ARTHROPATHY [None]
  - ASTHENIA [None]
  - BACK DISORDER [None]
  - CHEST PAIN [None]
  - LIMB INJURY [None]
  - MYOCARDIAL INFARCTION [None]
  - NEUROPATHY [None]
